FAERS Safety Report 10355387 (Version 1)
Quarter: 2014Q3

REPORT INFORMATION
  Report Type: Report from Study
  Country: BR (occurrence: BR)
  Receive Date: 20140731
  Receipt Date: 20140731
  Transmission Date: 20150326
  Serious: Yes (Death, Other)
  Sender: FDA-Public Use
  Company Number: BR-ABBVIE-14P-020-1265585-00

PATIENT
  Age: 2 Month
  Sex: Female
  Weight: 4.8 kg

DRUGS (5)
  1. RANITIDINE [Concomitant]
     Active Substance: RANITIDINE\RANITIDINE HYDROCHLORIDE
     Indication: HEART DISEASE CONGENITAL
     Route: 048
     Dates: start: 201405, end: 20140720
  2. SYNAGIS [Suspect]
     Active Substance: PALIVIZUMAB
     Indication: HEART DISEASE CONGENITAL
     Route: 030
     Dates: start: 20140524, end: 20140626
  3. FUROSEMIDE. [Concomitant]
     Active Substance: FUROSEMIDE
     Indication: HEART DISEASE CONGENITAL
     Route: 048
     Dates: start: 201405, end: 20140720
  4. AAS [Concomitant]
     Active Substance: ASPIRIN
     Indication: HEART DISEASE CONGENITAL
     Dosage: 100MG TABLET DILUTED IN 10ML OF WATER AND ADMINISTERED 2ML OF THIS SOLUTION
     Route: 048
     Dates: start: 201405, end: 20140720
  5. DIMETHICONE. [Concomitant]
     Active Substance: DIMETHICONE
     Indication: ABDOMINAL PAIN
     Route: 048
     Dates: start: 201405, end: 20140720

REACTIONS (6)
  - Stent placement [Unknown]
  - Vomiting [Fatal]
  - Pyrexia [Fatal]
  - Cyanosis [Fatal]
  - Convulsion [Fatal]
  - Laboratory test abnormal [Unknown]

NARRATIVE: CASE EVENT DATE: 20140720
